FAERS Safety Report 6304608-8 (Version None)
Quarter: 2009Q3

REPORT INFORMATION
  Report Type: 
  Country: None (occurrence: None)
  Receive Date: 20090811
  Receipt Date: 20090804
  Transmission Date: 20100115
  Serious: Yes (Other)
  Sender: FDA-Public Use
  Company Number: US-JNJFOC-20090801889

PATIENT
  Sex: Female
  Weight: 67.13 kg

DRUGS (2)
  1. TOPAMAX [Suspect]
     Route: 048
  2. TOPAMAX [Suspect]
     Indication: MIGRAINE PROPHYLAXIS
     Route: 048

REACTIONS (10)
  - ANXIETY [None]
  - DIZZINESS [None]
  - FALL [None]
  - HYPERVENTILATION [None]
  - HYPOAESTHESIA [None]
  - HYPOKINESIA [None]
  - LOSS OF CONSCIOUSNESS [None]
  - TREMOR [None]
  - VISION BLURRED [None]
  - VISUAL IMPAIRMENT [None]
